FAERS Safety Report 4276691-5 (Version None)
Quarter: 2004Q1

REPORT INFORMATION
  Report Type: 
  Country: None (occurrence: None)
  Receive Date: 20040120
  Receipt Date: 20031111
  Transmission Date: 20041129
  Serious: Yes (Hospitalization, Other)
  Sender: FDA-Public Use
  Company Number: KII-2003-0006868

PATIENT
  Age: 34 Year
  Sex: Female

DRUGS (4)
  1. OXYCONTIN [Suspect]
     Dosage: 10 MG, ORAL
     Route: 048
  2. HYDROCODONE BITARTRATE W/ ACETAMINOPHEN [Suspect]
     Dosage: ORAL
     Route: 048
  3. ANTIINFLAMMATORY/ANTIRHEUMATIC PRODUCTS [Concomitant]
  4. ANTIMALARIALS [Concomitant]

REACTIONS (19)
  - ACIDOSIS [None]
  - ALANINE AMINOTRANSFERASE INCREASED [None]
  - ASPARTATE AMINOTRANSFERASE INCREASED [None]
  - BLOOD ALBUMIN ABNORMAL [None]
  - BLOOD BICARBONATE DECREASED [None]
  - BLOOD CALCIUM ABNORMAL [None]
  - BLOOD CHLORIDE ABNORMAL [None]
  - BLOOD GLUCOSE ABNORMAL [None]
  - BLOOD POTASSIUM ABNORMAL [None]
  - DIARRHOEA [None]
  - DRUG TOXICITY [None]
  - HEART RATE INCREASED [None]
  - LIVER FUNCTION TEST ABNORMAL [None]
  - MULTIPLE DRUG OVERDOSE [None]
  - OLIGURIA [None]
  - OXYGEN SATURATION DECREASED [None]
  - SEDATION [None]
  - SINUS HEADACHE [None]
  - VOMITING [None]
